FAERS Safety Report 7294658-X (Version None)
Quarter: 2011Q1

REPORT INFORMATION
  Report Type: 
  Country: None (occurrence: None)
  Receive Date: 20110204
  Receipt Date: 20101210
  Transmission Date: 20110831
  Serious: Yes (Hospitalization, Other)
  Sender: FDA-Public Use
  Company Number: ACO_20531_2010

PATIENT
  Age: 73 Year
  Sex: Male
  Weight: 80.3 kg

DRUGS (12)
  1. ASPIRIN [Concomitant]
  2. LISINOPRIL [Concomitant]
  3. NITROFURANTOIN [Concomitant]
  4. CRESTOR [Concomitant]
  5. ACIPHEX [Concomitant]
  6. MULTIVITAMIN /00831701/ (VITAMINS NOS) [Concomitant]
  7. BETASERON [Concomitant]
  8. LASIX [Concomitant]
  9. TOPROL-XL [Concomitant]
  10. AMPYRA [Suspect]
     Indication: GAIT DISTURBANCE
     Dosage: 10 MG, BID, ORAL
     Route: 048
     Dates: start: 20101120, end: 20101120
  11. LIPITOR [Concomitant]
  12. SPIRONOLACTONE [Concomitant]

REACTIONS (8)
  - MENINGIOMA [None]
  - TONIC CONVULSION [None]
  - URINARY TRACT INFECTION [None]
  - LOSS OF CONSCIOUSNESS [None]
  - TONGUE BITING [None]
  - DRUG INEFFECTIVE [None]
  - CONFUSIONAL STATE [None]
  - URINE ANALYSIS ABNORMAL [None]
